FAERS Safety Report 6215223-9 (Version None)
Quarter: 2009Q2

REPORT INFORMATION
  Report Type: 
  Country: None (occurrence: None)
  Receive Date: 20090604
  Receipt Date: 20090529
  Transmission Date: 20091009
  Serious: Yes (Other)
  Sender: FDA-Public Use
  Company Number: IE-B.I. PHARMACEUTICALS,INC./RIDGEFIELD-2009-UK-00489UK

PATIENT
  Age: 65 Year
  Sex: Male

DRUGS (5)
  1. SPIRIVA [Suspect]
     Indication: CHRONIC OBSTRUCTIVE PULMONARY DISEASE
     Dosage: 18MCG
     Route: 055
  2. COMBIVENT [Concomitant]
     Dosage: 500 MCG PER 2.5ML NE
  3. SYMBICORT [Concomitant]
     Dosage: TURBOHALER 400/12
  4. NUSEALS ASPIRIN [Concomitant]
  5. UNIPHYLIN CONTINUS [Concomitant]

REACTIONS (1)
  - VISUAL IMPAIRMENT [None]
